FAERS Safety Report 9648730 (Version 3)
Quarter: 2013Q4

REPORT INFORMATION
  Report Type: Spontaneous
  Country: US (occurrence: US)
  Receive Date: 20131028
  Receipt Date: 20131107
  Transmission Date: 20140711
  Serious: Yes (Death, Hospitalization, Other)
  Sender: FDA-Public Use
  Company Number: US-GILEAD-2013-0086238

PATIENT
  Sex: Male
  Weight: 75.9 kg

DRUGS (2)
  1. LETAIRIS [Suspect]
     Indication: PULMONARY HYPERTENSION
     Dosage: 5 MG, QD
     Route: 048
     Dates: start: 201005
  2. LETAIRIS [Suspect]
     Indication: MYELODYSPLASTIC SYNDROME

REACTIONS (1)
  - Respiratory arrest [Fatal]
